FAERS Safety Report 19098051 (Version 2)
Quarter: 2021Q2

REPORT INFORMATION
  Report Type: Report from Study
  Country: US (occurrence: US)
  Receive Date: 20210406
  Receipt Date: 20210426
  Transmission Date: 20210717
  Serious: Yes (Hospitalization)
  Sender: FDA-Public Use
  Company Number: US-PFIZER INC-2021320661

PATIENT
  Age: 74 Year
  Sex: Male
  Weight: 88.6 kg

DRUGS (23)
  1. TIMOLOL. [Concomitant]
     Active Substance: TIMOLOL
     Indication: PROPHYLAXIS
     Dosage: 0.5 % OPHTHALMIC SOLUTION, INSTILL ONE DROP INTO BOTH EYES EVERY MORNING, N/A ? BASELINE
     Route: 047
     Dates: start: 2010
  2. VALTREX [Concomitant]
     Active Substance: VALACYCLOVIR HYDROCHLORIDE
     Indication: SUNBURN
     Dosage: 500MG TABLET, TAKE TWO TABLETS PO BID, SUNBURN (LIP SORE)
     Route: 048
     Dates: start: 20200903
  3. PALBOCICLIB [Suspect]
     Active Substance: PALBOCICLIB
     Indication: PANCREATIC CARCINOMA
     Dosage: 125 MG, QD
     Route: 048
     Dates: start: 20200819, end: 20210319
  4. CREON [Concomitant]
     Active Substance: PANCRELIPASE AMYLASE\PANCRELIPASE LIPASE\PANCRELIPASE PROTEASE
     Indication: COLITIS
     Dosage: LIPASE?PROTEASE?AMYLASE (CREON), 36000?114000?180000 UNIT CPDR, N/A ? BASELINE
     Dates: start: 201902
  5. KENALOG [Concomitant]
     Active Substance: TRIAMCINOLONE ACETONIDE
     Indication: MOUTH ULCERATION
  6. BENTYL [Concomitant]
     Active Substance: DICYCLOMINE HYDROCHLORIDE
     Indication: IRRITABLE BOWEL SYNDROME
     Dosage: N/A ? BASELINE
     Route: 048
     Dates: start: 201902
  7. KENALOG [Concomitant]
     Active Substance: TRIAMCINOLONE ACETONIDE
     Indication: DERMATITIS ACNEIFORM
     Dosage: 0.1% CREAM, APPLY TOPICALLY BID, N/A ? BASELINE
     Route: 061
     Dates: start: 20200812
  8. MAG?OX [Concomitant]
     Active Substance: MAGNESIUM OXIDE
     Indication: HYPOMAGNESAEMIA
     Dosage: 400MG (241.3MG MAGNESIUM) TABLET, TAKE ONE TABLET PO EVERY DAY (CHANGED TO BID
     Route: 048
  9. IMODIUM [Concomitant]
     Active Substance: LOPERAMIDE HYDROCHLORIDE
     Indication: DIARRHOEA
     Dosage: PRN, DIARRHEA
     Dates: start: 20200909
  10. ATIVAN [Concomitant]
     Active Substance: LORAZEPAM
     Indication: NAUSEA
     Dosage: 1 MG TABLET, TAKE 0.5 TABLET PO EVERY 6? 8HRS PRN, NAUSEA (INTERMITTENT)
     Route: 048
     Dates: start: 20201111
  11. ZYPREXA [Concomitant]
     Active Substance: OLANZAPINE
     Indication: NAUSEA
     Dosage: 2.5MG TABLET, TAKE ONE TABLET PO NIGHTLY, NAUSEA (INTERMITTENT)
     Route: 048
     Dates: start: 20201113
  12. ATIVAN [Concomitant]
     Active Substance: LORAZEPAM
     Indication: INSOMNIA
     Dosage: PRN, N/A ? BASELINE, MOVEMENTS INVOLUNTARY (LEGS)
     Dates: start: 2010
  13. ZOFRAN [Concomitant]
     Active Substance: ONDANSETRON HYDROCHLORIDE
     Indication: NAUSEA
     Dosage: 8MG DISINTEGRATING TABLET PRN
  14. MONODOX [DOXYCYCLINE] [Concomitant]
     Indication: DERMATITIS ACNEIFORM
     Dosage: TAKE ONE CAPSULE PO BID WITH FOOD
     Route: 048
     Dates: start: 20200812
  15. XALATAN [Concomitant]
     Active Substance: LATANOPROST
     Indication: PROPHYLAXIS
     Dosage: 0.005 % OPHTHALMIC SOLUTION, INSTILL ONE DROP INTO BOTH EYES AT NIGHT, N/A ? BASELINE
     Route: 047
     Dates: start: 2010
  16. COLACE [Concomitant]
     Active Substance: DOCUSATE SODIUM
     Indication: DIARRHOEA
  17. ULIXERTINIB. [Suspect]
     Active Substance: ULIXERTINIB
     Indication: PANCREATIC CARCINOMA
     Dosage: 300 MG, BID
     Route: 048
     Dates: start: 20200812, end: 20210319
  18. ATIVAN [Concomitant]
     Active Substance: LORAZEPAM
     Indication: DYSKINESIA
  19. PROTONIX [Concomitant]
     Active Substance: PANTOPRAZOLE SODIUM
     Indication: GASTROOESOPHAGEAL REFLUX DISEASE
     Dosage: TAKE ONE TABLET PO QD AT LEAST 30MINS BEFORE ANY OTHER MEDICATION, N/A ? BASELINE
     Route: 048
     Dates: start: 201902
  20. KENALOG [Concomitant]
     Active Substance: TRIAMCINOLONE ACETONIDE
     Indication: STOMATITIS
     Dosage: 0.1% PASTE, APPLY A SMALL AMOUNT T ULCERS BID, MUCOSITIS ORAL (MOUTH SORES/ULCERS)
     Dates: start: 20200910
  21. COLACE [Concomitant]
     Active Substance: DOCUSATE SODIUM
     Indication: COLITIS
     Dosage: TAKE PO PRN, FEB2019 (TAKING BID AS OF 25NOV2020), N/A ? BASELINE
     Route: 048
     Dates: start: 201902
  22. VALTREX [Concomitant]
     Active Substance: VALACYCLOVIR HYDROCHLORIDE
     Indication: LIP PAIN
  23. AUGMENTIN [Concomitant]
     Active Substance: AMOXICILLIN\CLAVULANATE POTASSIUM
     Indication: COLITIS
     Dosage: 875?125MG TABLET, TAKE ONE TABLET EVERY 12 HRS FOR 10 DAYS, N/A ? BASELINE
     Dates: start: 20201014, end: 20201024

REACTIONS (2)
  - Abdominal pain [Recovered/Resolved]
  - Cholecystitis acute [Recovered/Resolved]

NARRATIVE: CASE EVENT DATE: 20210319
